FAERS Safety Report 8179410-5 (Version None)
Quarter: 2012Q1

REPORT INFORMATION
  Report Type: 
  Country: None (occurrence: None)
  Receive Date: 20120302
  Receipt Date: 20120227
  Transmission Date: 20120608
  Serious: Yes (Death)
  Sender: FDA-Public Use
  Company Number: CHPA2012US003771

PATIENT
  Age: 62 Year
  Sex: Female

DRUGS (17)
  1. ALBUTEROL SULFATE AND IPRATROPIUM BROMIDE [Suspect]
     Dosage: UNK,UNK
     Route: 065
  2. INSULIN [Suspect]
     Dosage: UNK,UNK
     Route: 065
  3. ACE INHIBITOR NOS [Suspect]
     Dosage: UNK,UNK
     Route: 065
  4. AMLODIPINE [Suspect]
     Dosage: UNK,UNK
     Route: 065
  5. CLONIDINE [Suspect]
     Dosage: UNK,UNK
     Route: 065
  6. CITALOPRAM HYDROBROMIDE [Suspect]
     Dosage: UNK,UNK
     Route: 065
  7. METOLAZONE [Suspect]
     Dosage: UNK,UNK
     Route: 065
  8. FLUTICASONE PROPIONATE/SALMETEROL [Suspect]
     Dosage: UNK,UNK
     Route: 065
  9. FUROSEMIDE [Suspect]
     Dosage: UNK,UNK
     Route: 065
  10. LOVASTATIN [Suspect]
     Dosage: UNK,UNK
     Route: 065
  11. FERROUS SULFATE TAB [Suspect]
     Dosage: UNK,UNK
     Route: 065
  12. METOPROLOL SUCCINATE [Suspect]
     Dosage: UNK,UNK
     Route: 065
  13. METFORMIN HCL [Suspect]
     Dosage: UNK,UNK
     Route: 065
  14. OMEPRAZOLE [Suspect]
     Dosage: UNK,UNK
     Route: 065
  15. FAMOTIDINE [Suspect]
     Dosage: UNK,UNK
     Route: 065
  16. DOCUSATE [Suspect]
     Dosage: UNK,UNK
     Route: 065
  17. SALICYLATES [Suspect]
     Dosage: UNK,UNK
     Route: 065

REACTIONS (1)
  - DEATH [None]
